FAERS Safety Report 4971146-4 (Version None)
Quarter: 2006Q1

REPORT INFORMATION
  Report Type: 
  Country: None (occurrence: None)
  Receive Date: 20060223
  Receipt Date: 20051010
  Transmission Date: 20060701
  Serious: Yes (Other)
  Sender: FDA-Public Use
  Company Number: HQWYE953111OCT05

PATIENT
  Sex: Male

DRUGS (2)
  1. EFFEXOR [Suspect]
     Dates: start: 20050401
  2. UNSPECIFIED ANTIANXIETY AGENT (UNSPECIFIED ANTIANXIETY AGENT) [Concomitant]

REACTIONS (5)
  - ANXIETY [None]
  - CONDITION AGGRAVATED [None]
  - FEAR [None]
  - NONSPECIFIC REACTION [None]
  - SUICIDAL IDEATION [None]
